FAERS Safety Report 9252153 (Version 1)
Quarter: 2013Q2

REPORT INFORMATION
  Report Type: Spontaneous
  Country: FR (occurrence: FR)
  Receive Date: 20130424
  Receipt Date: 20130424
  Transmission Date: 20140414
  Serious: Yes (Hospitalization, Other)
  Sender: FDA-Public Use
  Company Number: FR-PFIZER INC-2013123068

PATIENT
  Age: 31 Year
  Sex: Female

DRUGS (1)
  1. ADEPAL [Suspect]
     Indication: CONTRACEPTION
     Dosage: 1 DF, 1X/DAY
     Route: 048
     Dates: start: 2002, end: 20120420

REACTIONS (2)
  - Pulmonary embolism [Recovered/Resolved]
  - Lung infection [Recovered/Resolved]
